FAERS Safety Report 21452468 (Version 1)
Quarter: 2022Q4

REPORT INFORMATION
  Report Type: Other
  Country: IT (occurrence: None)
  Receive Date: 20221013
  Receipt Date: 20221013
  Transmission Date: 20230113
  Serious: Yes (Hospitalization)
  Sender: FDA-Public Use
  Company Number: None

PATIENT
  Age: 80 Year
  Sex: Male

DRUGS (9)
  1. BEVACIZUMAB [Suspect]
     Active Substance: BEVACIZUMAB
     Indication: Glioblastoma
     Route: 065
     Dates: start: 20220902
  2. FOTEMUSTINE [Suspect]
     Active Substance: FOTEMUSTINE
     Indication: Glioblastoma
     Route: 065
     Dates: start: 20220902
  3. DECADRON [Concomitant]
     Active Substance: DEXAMETHASONE
  4. FINASTERIDE [Concomitant]
     Active Substance: FINASTERIDE
  5. ELOPRAM [Concomitant]
  6. RIVOTRIL [Concomitant]
     Active Substance: CLONAZEPAM
  7. KEPPRA [Concomitant]
     Active Substance: LEVETIRACETAM
  8. ALLOPURINOL [Concomitant]
     Active Substance: ALLOPURINOL
  9. PANTOPRAZOLE SODIUM [Concomitant]
     Active Substance: PANTOPRAZOLE SODIUM

REACTIONS (5)
  - Dyspnoea [Unknown]
  - Cognitive disorder [Unknown]
  - Rectal haemorrhage [Unknown]
  - Aphasia [Unknown]
  - Somnolence [Unknown]

NARRATIVE: CASE EVENT DATE: 20220902
